FAERS Safety Report 7814354-7 (Version None)
Quarter: 2011Q4

REPORT INFORMATION
  Report Type: 
  Country: None (occurrence: None)
  Receive Date: 20111014
  Receipt Date: 20111011
  Transmission Date: 20120403
  Serious: Yes (Hospitalization)
  Sender: FDA-Public Use
  Company Number: GB-AMGEN-GBRCT2011049217

PATIENT
  Age: 52 Year
  Sex: Female

DRUGS (5)
  1. DOCETAXEL [Concomitant]
     Dosage: 190 MG, Q3WK
     Route: 042
     Dates: start: 20110712
  2. NEUPOGEN [Concomitant]
     Dosage: UNK UNK, QD
     Route: 058
     Dates: start: 20110803
  3. BLINDED DENOSUMAB [Suspect]
     Indication: BREAST CANCER
     Dates: start: 20110802
  4. BLINDED PLACEBO [Suspect]
     Indication: BREAST CANCER
     Dates: start: 20110802
  5. HERCEPTIN [Concomitant]
     Dosage: 450 MG, Q3WK
     Route: 042
     Dates: start: 20110712

REACTIONS (1)
  - PYREXIA [None]
